FAERS Safety Report 9835579 (Version 2)
Quarter: 2014Q3

REPORT INFORMATION
  Report Type: Spontaneous
  Country: US (occurrence: US)
  Receive Date: 20140122
  Receipt Date: 20140730
  Transmission Date: 20150326
  Serious: Yes (Hospitalization, Other)
  Sender: FDA-Public Use
  Company Number: US-009507513-1401USA009897

PATIENT
  Sex: Female

DRUGS (1)
  1. NUVARING [Suspect]
     Active Substance: ETHINYL ESTRADIOL\ETONOGESTREL
     Indication: CONTRACEPTION
     Dosage: UNK
     Route: 067
     Dates: end: 2012

REACTIONS (12)
  - Cerebrovascular accident [Unknown]
  - Epistaxis [Recovered/Resolved]
  - Hypertension [Unknown]
  - Obesity [Unknown]
  - Antiphospholipid antibodies positive [Unknown]
  - Aphasia [Recovering/Resolving]
  - Factor V Leiden mutation [Unknown]
  - Vision blurred [Unknown]
  - Headache [Unknown]
  - Supraventricular tachycardia [Recovered/Resolved with Sequelae]
  - Dizziness [Recovered/Resolved]
  - Hemiparesis [Unknown]

NARRATIVE: CASE EVENT DATE: 20120426
